FAERS Safety Report 5146857-0 (Version None)
Quarter: 2006Q4

REPORT INFORMATION
  Report Type: 
  Country: None (occurrence: None)
  Receive Date: 20061109
  Receipt Date: 20061107
  Transmission Date: 20070319
  Serious: Yes (Other)
  Sender: FDA-Public Use
  Company Number: US-GLAXOSMITHKLINE-A0626558A

PATIENT
  Age: 16 Year
  Sex: Female

DRUGS (2)
  1. LAMICTAL [Suspect]
     Indication: EPILEPSY
     Route: 048
  2. DEPAKOTE [Concomitant]

REACTIONS (4)
  - ACNE [None]
  - NERVOUS SYSTEM DISORDER [None]
  - OPTIC NEURITIS [None]
  - VISUAL DISTURBANCE [None]
